FAERS Safety Report 9942288 (Version 2)
Quarter: 2014Q1

REPORT INFORMATION
  Report Type: Report from Study
  Country: DE (occurrence: DE)
  Receive Date: 20140303
  Receipt Date: 20140303
  Transmission Date: 20141002
  Serious: Yes (Hospitalization)
  Sender: FDA-Public Use
  Company Number: DE-BAYER-2013-063598

PATIENT
  Age: 55 Year
  Sex: Female

DRUGS (3)
  1. BETAFERON [Suspect]
     Indication: MULTIPLE SCLEROSIS
  2. BETAFERON [Suspect]
     Indication: MULTIPLE SCLEROSIS
     Dosage: 250 ?G, QOD
     Route: 058
     Dates: start: 20030201, end: 20140203
  3. CITALOPRAM [Concomitant]
     Dosage: 30 MG, QD

REACTIONS (9)
  - Pyrexia [Recovered/Resolved]
  - Urticaria [Recovered/Resolved]
  - Skin striae [Recovered/Resolved]
  - Chills [Recovered/Resolved]
  - Dermatitis [Recovered/Resolved]
  - Depressed mood [Recovering/Resolving]
  - Blood test abnormal [Recovered/Resolved]
  - Vertigo [None]
  - Nausea [None]
